FAERS Safety Report 14715169 (Version 1)
Quarter: 2018Q2

REPORT INFORMATION
  Report Type: Spontaneous
  Country: CN (occurrence: CN)
  Receive Date: 20180404
  Receipt Date: 20180404
  Transmission Date: 20180711
  Serious: Yes (Other)
  Sender: FDA-Public Use
  Company Number: CN-BAYER-2018-060626

PATIENT
  Age: 85 Year
  Sex: Male
  Weight: 80 kg

DRUGS (1)
  1. BAYASPIRIN 100 MG [Suspect]
     Active Substance: ASPIRIN
     Indication: PLATELET AGGREGATION ABNORMAL
     Dosage: 100 MG, QD
     Route: 048
     Dates: start: 20180129, end: 20180204

REACTIONS (1)
  - Blood pressure decreased [Recovering/Resolving]

NARRATIVE: CASE EVENT DATE: 20180202
